FAERS Safety Report 7107689-7 (Version None)
Quarter: 2010Q4

REPORT INFORMATION
  Report Type: 
  Country: None (occurrence: None)
  Receive Date: 20101117
  Receipt Date: 20101108
  Transmission Date: 20110411
  Serious: Yes (Hospitalization)
  Sender: FDA-Public Use
  Company Number: HU-AMGEN-HUNSP2010003489

PATIENT

DRUGS (6)
  1. ARANESP [Suspect]
     Indication: ANAEMIA
     Dosage: 50 A?G, QWK
     Route: 058
     Dates: start: 20100408
  2. FERRLECIT                          /01099901/ [Concomitant]
     Dosage: 3 MG, QWK
     Route: 042
     Dates: start: 20100408
  3. FUROSEMID                          /00032601/ [Concomitant]
     Indication: OLIGURIA
     Dosage: 250 MG, QD
     Route: 048
     Dates: start: 20100408
  4. ASPIRIN [Concomitant]
     Indication: PROPHYLAXIS
     Dosage: 100 MG, QD
     Route: 048
     Dates: start: 20080801
  5. CONTROLOC                          /01263201/ [Concomitant]
     Indication: PROPHYLAXIS
     Dosage: 40 MG, QD
     Route: 048
     Dates: start: 20070401
  6. DIAPREL MR [Concomitant]
     Indication: DIABETES MELLITUS
     Dosage: 30 MG, QD
     Route: 048
     Dates: start: 20070401

REACTIONS (1)
  - APLASIA PURE RED CELL [None]
